FAERS Safety Report 4706866-X (Version None)
Quarter: 2005Q3

REPORT INFORMATION
  Report Type: 
  Country: None (occurrence: None)
  Receive Date: 20050706
  Receipt Date: 20050429
  Transmission Date: 20060218
  Serious: Yes (Hospitalization)
  Sender: FDA-Public Use
  Company Number: US-MERCK-0505USA00175

PATIENT
  Age: 63 Year
  Sex: Female

DRUGS (10)
  1. VIOXX [Suspect]
     Route: 048
  2. ELAVIL [Concomitant]
     Route: 048
  3. GLYBURIDE [Concomitant]
     Route: 065
  4. CARDIZEM [Concomitant]
     Route: 065
  5. VASOTEC [Concomitant]
     Route: 048
  6. ALLEGRA [Concomitant]
     Route: 065
  7. SEREVENT [Concomitant]
     Route: 055
  8. AZMACORT [Concomitant]
     Route: 055
  9. PREMARIN [Concomitant]
     Route: 065
  10. PRILOSEC [Concomitant]
     Route: 048

REACTIONS (16)
  - ACUTE MYOCARDIAL INFARCTION [None]
  - ANGINA UNSTABLE [None]
  - AORTIC CALCIFICATION [None]
  - ARTERIOSCLEROSIS [None]
  - BLOOD CHOLESTEROL INCREASED [None]
  - BLOOD HOMOCYSTEINE INCREASED [None]
  - CARDIAC MURMUR [None]
  - CHEST PAIN [None]
  - CORONARY ARTERY DISEASE [None]
  - CORONARY ARTERY OCCLUSION [None]
  - DIABETES MELLITUS INADEQUATE CONTROL [None]
  - ELECTROCARDIOGRAM T WAVE ABNORMAL [None]
  - GASTROOESOPHAGEAL REFLUX DISEASE [None]
  - HYPERCHOLESTEROLAEMIA [None]
  - SINUSITIS [None]
  - SOMNOLENCE [None]
